FAERS Safety Report 5252896-1 (Version None)
Quarter: 2007Q1

REPORT INFORMATION
  Report Type: 
  Country: None (occurrence: None)
  Receive Date: 20061201
  Receipt Date: 20060826
  Transmission Date: 20070707
  Serious: No
  Sender: FDA-Public Use
  Company Number: 2006PV020161

PATIENT
  Age: 66 Year
  Sex: Female
  Weight: 77.1115 kg

DRUGS (9)
  1. BYETTA [Suspect]
     Indication: DIABETES MELLITUS NON-INSULIN-DEPENDENT
     Dosage: SEE IMAGE
     Route: 058
     Dates: start: 20060301, end: 20060401
  2. BYETTA [Suspect]
     Indication: DIABETES MELLITUS NON-INSULIN-DEPENDENT
     Dosage: SEE IMAGE
     Route: 058
     Dates: start: 20060401
  3. IMITREX [Suspect]
     Indication: MIGRAINE
     Dosage: 100 MG;PRN;PO
     Route: 048
  4. GLYBURIDE [Concomitant]
  5. ACTOS [Concomitant]
  6. NORMODYNE [Concomitant]
  7. MAXZIDE [Concomitant]
  8. LEXAPRO [Concomitant]
  9. IMITREX [Concomitant]

REACTIONS (6)
  - BLOOD GLUCOSE INCREASED [None]
  - BLOOD PRESSURE DECREASED [None]
  - DIZZINESS [None]
  - HEADACHE [None]
  - UNEVALUABLE EVENT [None]
  - WEIGHT DECREASED [None]
